FAERS Safety Report 9171775 (Version 2)
Quarter: 2013Q2

REPORT INFORMATION
  Report Type: Spontaneous
  Country: TR (occurrence: TR)
  Receive Date: 20130319
  Receipt Date: 20130507
  Transmission Date: 20140414
  Serious: Yes (Hospitalization, Other)
  Sender: FDA-Public Use
  Company Number: PHHY2013TR024278

PATIENT
  Sex: Male

DRUGS (2)
  1. GILENYA [Suspect]
     Dosage: UNK UKN, QD
     Route: 048
     Dates: start: 20120609, end: 20130306
  2. ANTIHYPERTENSIVES [Concomitant]
     Indication: HYPERTENSION

REACTIONS (3)
  - Myocardial infarction [Recovering/Resolving]
  - Arteriosclerosis [Recovering/Resolving]
  - Angina unstable [Unknown]
